FAERS Safety Report 17064828 (Version 1)
Quarter: 2019Q4

REPORT INFORMATION
  Report Type: Spontaneous
  Country: US (occurrence: US)
  Receive Date: 20191024
  Receipt Date: 20191024
  Transmission Date: 20200122
  Serious: No
  Sender: FDA-Public Use
  Company Number: None

PATIENT
  Age: 29 Year
  Sex: Female

DRUGS (1)
  1. TREMFYA [Suspect]
     Active Substance: GUSELKUMAB
     Dosage: ?          OTHER FREQUENCY:OTHER;?
     Route: 058
     Dates: start: 201904

REACTIONS (4)
  - Upper respiratory tract infection [None]
  - Therapy cessation [None]
  - Sinusitis [None]
  - Skin disorder [None]

NARRATIVE: CASE EVENT DATE: 20191024
